FAERS Safety Report 20139045 (Version 1)
Quarter: 2021Q4

REPORT INFORMATION
  Report Type: Spontaneous
  Country: CA (occurrence: CA)
  Receive Date: 20211202
  Receipt Date: 20211202
  Transmission Date: 20220303
  Serious: Yes (Other)
  Sender: FDA-Public Use
  Company Number: CA-APOTEX-2021AP002191

PATIENT
  Sex: Female

DRUGS (4)
  1. PENTOXIFYLLINE [Suspect]
     Active Substance: PENTOXIFYLLINE
     Indication: Necrosis
     Dosage: 400 MILLIGRAM, TID DAY DURING MEALS
     Route: 048
     Dates: start: 20210106, end: 20210122
  2. DEXAMETHASONE [Suspect]
     Active Substance: DEXAMETHASONE
     Indication: Nausea
     Dosage: UNK
     Route: 048
     Dates: start: 201909
  3. DEXAMETHASONE [Suspect]
     Active Substance: DEXAMETHASONE
     Indication: Vomiting
  4. VITAMIN E [Concomitant]
     Active Substance: .ALPHA.-TOCOPHEROL
     Indication: Necrosis
     Dosage: 1000 INTERNATIONAL UNIT, 5 TIMES A DAY
     Route: 065

REACTIONS (7)
  - Suicidal ideation [Recovered/Resolved]
  - Nightmare [Recovered/Resolved]
  - Depression [Recovered/Resolved]
  - Crying [Recovered/Resolved]
  - Mood swings [Recovered/Resolved]
  - Anger [Recovered/Resolved]
  - Irritability [Recovered/Resolved]
